FAERS Safety Report 22342968 (Version 1)
Quarter: 2023Q2

REPORT INFORMATION
  Report Type: Spontaneous
  Country: CA (occurrence: CA)
  Receive Date: 20230519
  Receipt Date: 20230519
  Transmission Date: 20230721
  Serious: Yes (Other)
  Sender: FDA-Public Use
  Company Number: CA-ORGANON-O2305CAN001058

PATIENT
  Sex: Female

DRUGS (39)
  1. CELESTONE SOLUSPAN [Suspect]
     Active Substance: BETAMETHASONE ACETATE\BETAMETHASONE SODIUM PHOSPHATE
     Indication: Product used for unknown indication
     Dosage: UNK
     Route: 030
  2. CELESTONE SOLUSPAN [Suspect]
     Active Substance: BETAMETHASONE ACETATE\BETAMETHASONE SODIUM PHOSPHATE
     Dosage: 12 MILLIGRAM, 1 EVERY 24 HOURS
     Route: 030
  3. AMPICILLIN [Suspect]
     Active Substance: AMPICILLIN
     Indication: Peptostreptococcus infection
     Dosage: 1 GRAM, 1 EVERY 6 HOURS; (DOSAGE FORM: NOT SPECIFIED) ROUTE: INTRAVENOUS (NOT OTHERWISE SPECIFIED)
     Route: 042
  4. AMPICILLIN [Suspect]
     Active Substance: AMPICILLIN
     Indication: Antibiotic therapy
  5. AMPICILLIN [Suspect]
     Active Substance: AMPICILLIN
     Indication: Candida infection
  6. AMPICILLIN [Suspect]
     Active Substance: AMPICILLIN
     Indication: Infection
  7. AMPICILLIN [Suspect]
     Active Substance: AMPICILLIN
     Indication: Beta haemolytic streptococcal infection
  8. AMPICILLIN [Suspect]
     Active Substance: AMPICILLIN
     Indication: Ureaplasma infection
  9. AMPICILLIN [Suspect]
     Active Substance: AMPICILLIN
     Indication: Lactobacillus infection
  10. AMPICILLIN [Suspect]
     Active Substance: AMPICILLIN
     Indication: Streptococcal infection
  11. AMPICILLIN [Suspect]
     Active Substance: AMPICILLIN
     Indication: Haemophilus infection
  12. ATOSIBAN [Suspect]
     Active Substance: ATOSIBAN
     Indication: Product used for unknown indication
     Dosage: UNK
     Route: 065
  13. AZITHROMYCIN [Suspect]
     Active Substance: AZITHROMYCIN
     Indication: Peptostreptococcus infection
     Dosage: 1 GRAM, 1 EVERY 1 DAY (DOSAGE FORM: NOT SPECIFIED)
     Route: 048
  14. AZITHROMYCIN [Suspect]
     Active Substance: AZITHROMYCIN
     Indication: Antibiotic therapy
  15. AZITHROMYCIN [Suspect]
     Active Substance: AZITHROMYCIN
     Indication: Candida infection
  16. AZITHROMYCIN [Suspect]
     Active Substance: AZITHROMYCIN
     Indication: Infection
  17. AZITHROMYCIN [Suspect]
     Active Substance: AZITHROMYCIN
     Indication: Ureaplasma infection
  18. AZITHROMYCIN [Suspect]
     Active Substance: AZITHROMYCIN
     Indication: Beta haemolytic streptococcal infection
  19. AZITHROMYCIN [Suspect]
     Active Substance: AZITHROMYCIN
     Indication: Lactobacillus infection
  20. AZITHROMYCIN [Suspect]
     Active Substance: AZITHROMYCIN
     Indication: Streptococcal infection
  21. AZITHROMYCIN [Suspect]
     Active Substance: AZITHROMYCIN
     Indication: Haemophilus infection
  22. GENTAMICIN [Suspect]
     Active Substance: GENTAMICIN
     Indication: Peptostreptococcus infection
     Dosage: 80 MILLIGRAM, 1 EVERY 8 HOURS (DOSAGE FORM: NOT SPECIFIED); ROUTE: INTRAVENOUS (NOT OTHERWISE SPECIF
     Route: 042
  23. GENTAMICIN [Suspect]
     Active Substance: GENTAMICIN
     Indication: Antibiotic therapy
  24. GENTAMICIN [Suspect]
     Active Substance: GENTAMICIN
     Indication: Candida infection
  25. GENTAMICIN [Suspect]
     Active Substance: GENTAMICIN
     Indication: Infection
  26. GENTAMICIN [Suspect]
     Active Substance: GENTAMICIN
     Indication: Ureaplasma infection
  27. GENTAMICIN [Suspect]
     Active Substance: GENTAMICIN
     Indication: Beta haemolytic streptococcal infection
  28. GENTAMICIN [Suspect]
     Active Substance: GENTAMICIN
     Indication: Lactobacillus infection
  29. GENTAMICIN [Suspect]
     Active Substance: GENTAMICIN
     Indication: Streptococcal infection
  30. GENTAMICIN [Suspect]
     Active Substance: GENTAMICIN
     Indication: Haemophilus infection
  31. DEXTROSE [Suspect]
     Active Substance: DEXTROSE\DEXTROSE MONOHYDRATE
     Indication: Product used for unknown indication
     Dosage: UNK; DOSAGE FORM: NOT SPECIFIED
     Route: 065
  32. MAGNESIUM SULFATE [Suspect]
     Active Substance: MAGNESIUM SULFATE
     Indication: Nervous system disorder
     Dosage: UNK; DOSAGE FORM: NOT SPECIFIED
     Route: 065
  33. MAGNESIUM SULFATE [Suspect]
     Active Substance: MAGNESIUM SULFATE
     Indication: Prophylaxis
  34. MAGNESIUM SULFATE [Suspect]
     Active Substance: MAGNESIUM SULFATE
     Indication: Foetal therapeutic procedure
  35. CEFOXITIN [Suspect]
     Active Substance: CEFOXITIN SODIUM
     Indication: Ureaplasma infection
     Dosage: UNK
     Route: 065
  36. CEFOXITIN [Suspect]
     Active Substance: CEFOXITIN SODIUM
     Indication: Antibiotic therapy
  37. CEFOXITIN [Suspect]
     Active Substance: CEFOXITIN SODIUM
     Indication: Infection
  38. AMPHOTERICIN B [Suspect]
     Active Substance: AMPHOTERICIN B
     Indication: Candida infection
     Dosage: UNK
     Route: 065
  39. AMPHOTERICIN B [Suspect]
     Active Substance: AMPHOTERICIN B
     Indication: Antibiotic therapy

REACTIONS (5)
  - Delivery [Unknown]
  - Maternal exposure during pregnancy [Unknown]
  - Normal labour [Unknown]
  - Premature delivery [Unknown]
  - Product use in unapproved indication [Unknown]
